FAERS Safety Report 10144186 (Version 1)
Quarter: 2014Q2

REPORT INFORMATION
  Report Type: Spontaneous
  Country: CA (occurrence: CA)
  Receive Date: 20140430
  Receipt Date: 20140430
  Transmission Date: 20141212
  Serious: Yes (Life-Threatening, Hospitalization, Disabling, Other)
  Sender: FDA-Public Use
  Company Number: CA-PFIZER INC-2014116324

PATIENT
  Age: 50 Year
  Sex: Female

DRUGS (13)
  1. CHAMPIX [Suspect]
     Dosage: 0.05 MG, 2X/DAY
     Route: 048
  2. CHAMPIX [Suspect]
     Dosage: 1 MG, 2X/DAY
     Route: 048
  3. ASA [Concomitant]
     Dosage: UNK
  4. LOSEC [Concomitant]
     Dosage: UNK
  5. METOPROLOL [Concomitant]
     Dosage: UNK
  6. CLARITHROMYCIN [Concomitant]
     Dosage: UNK
  7. DEXAMETHASONE [Concomitant]
     Dosage: UNK
  8. HYOSCINE BUTYLBROMIDE [Concomitant]
     Dosage: UNK
     Route: 030
  9. IRON DEXTRAN [Concomitant]
     Dosage: UNK
     Route: 030
  10. MORPHINE [Concomitant]
     Dosage: UNK
  11. PANTOPRAZOLE [Concomitant]
     Dosage: UNK
  12. RELPAX [Concomitant]
     Dosage: UNK
  13. TOPIRAMATE [Concomitant]
     Dosage: UNK

REACTIONS (25)
  - Amnesia [Recovered/Resolved]
  - Blindness transient [Recovered/Resolved]
  - Confusional state [Recovered/Resolved]
  - Gastric ulcer [Recovered/Resolved]
  - Generalised tonic-clonic seizure [Recovered/Resolved]
  - Headache [Recovered/Resolved]
  - Hypertension [Recovered/Resolved]
  - Posterior reversible encephalopathy syndrome [Recovered/Resolved]
  - Pulmonary embolism [Recovered/Resolved]
  - Vertigo [Recovered/Resolved]
  - Visual impairment [Recovered/Resolved]
  - Aggression [Recovered/Resolved]
  - Blindness [Recovered/Resolved]
  - Cataract [Recovered/Resolved]
  - Computerised tomogram head abnormal [Recovered/Resolved]
  - Convulsion [Recovered/Resolved]
  - Deep vein thrombosis [Recovered/Resolved]
  - Gastric disorder [Recovered/Resolved]
  - Gastrointestinal ulcer [Recovered/Resolved]
  - Halo vision [Recovered/Resolved]
  - Macular degeneration [Recovered/Resolved]
  - Malaise [Recovered/Resolved]
  - Nausea [Recovered/Resolved]
  - Vision blurred [Recovered/Resolved]
  - Vomiting [Recovered/Resolved]
